FAERS Safety Report 9469956 (Version 3)
Quarter: 2013Q3

REPORT INFORMATION
  Report Type: Report from Study
  Country: GB (occurrence: GB)
  Receive Date: 20130822
  Receipt Date: 20130902
  Transmission Date: 20140515
  Serious: Yes (Hospitalization)
  Sender: FDA-Public Use
  Company Number: PHHO2013GB009882

PATIENT
  Sex: 0

DRUGS (12)
  1. ZOMETA [Suspect]
     Indication: BONE PAIN
     Dosage: 4 MG, UNK
     Route: 042
     Dates: start: 20130124
  2. ZOMETA [Suspect]
     Indication: METASTATIC NEOPLASM
  3. COMPARATOR FULVESTRANT [Suspect]
     Indication: BREAST CANCER METASTATIC
     Dosage: UNK
     Dates: start: 20130514
  4. PLACEBO [Suspect]
     Indication: BREAST CANCER METASTATIC
     Dosage: UNK
     Route: 048
     Dates: start: 20130530
  5. XELODA [Suspect]
     Dosage: 500 MG, BID
     Route: 048
     Dates: start: 20130718, end: 20130721
  6. PARACETAMOL [Concomitant]
     Dosage: 1 G, QD
  7. GABAPENTIN [Concomitant]
     Dosage: 300 MG, TID
  8. GAVISCON                                /GFR/ [Concomitant]
     Dosage: 10 MG, QD
  9. NYSTATIN [Concomitant]
     Dosage: 100000 U, QD
  10. OMEPRAZOLE [Concomitant]
     Dosage: 20 MG, QD
  11. OXYCODONE [Concomitant]
     Dosage: 120 MG, BID
  12. OXYCODONE [Concomitant]
     Dosage: 40 MG, PRN

REACTIONS (1)
  - Oesophagitis [Recovered/Resolved]
